FAERS Safety Report 7599284-0 (Version None)
Quarter: 2011Q3

REPORT INFORMATION
  Report Type: 
  Country: None (occurrence: None)
  Receive Date: 20110711
  Receipt Date: 20091220
  Transmission Date: 20111222
  Serious: Yes (Death, Other)
  Sender: FDA-Public Use
  Company Number: US-BAYER-200943136NA

PATIENT
  Age: 51 Year
  Sex: Male
  Weight: 95 kg

DRUGS (34)
  1. TRASYLOL [Suspect]
     Dosage: 200 ML ONCE, PRIME
     Dates: start: 20021120, end: 20021120
  2. POTASSIUM CHLORIDE [Concomitant]
     Dosage: 20 MEQ INTERMITTENT DOSES
     Route: 042
     Dates: start: 20021016, end: 20021104
  3. OXYCODONE HCL [Concomitant]
     Dosage: 10 MG, BID
     Route: 048
     Dates: start: 20021115, end: 20021120
  4. TRASYLOL [Suspect]
     Dosage: 25ML/HR ONCE INFUSION
     Route: 042
     Dates: start: 20021120, end: 20021120
  5. AMITRIPTYLINE HCL [Concomitant]
     Dosage: 25 MG, HS, LONG TERM USE
     Route: 048
  6. ZOSYN [Concomitant]
     Dosage: 3.375 MG EVERY 12 HOURS, AND 2.25 (DOSE ADJUSTMENTS)
     Route: 042
     Dates: start: 20021011, end: 20030102
  7. VERSED [Concomitant]
     Dosage: UNK
     Route: 042
     Dates: start: 20021120
  8. MORPHINE SULFATE [Concomitant]
     Dosage: 4 MG, ONCE
     Route: 042
     Dates: start: 20021012, end: 20021013
  9. RIFAMPIN [Concomitant]
     Dosage: 600 MG, QD
     Route: 042
     Dates: start: 20021018, end: 20030106
  10. FUROSEMIDE [Concomitant]
     Dosage: UNK
     Route: 042
     Dates: start: 20021023, end: 20021029
  11. CIPROFLOXACIN [Concomitant]
     Dosage: 400 MG, EVERY 12 HOURS
     Route: 042
     Dates: start: 20021011
  12. CIPROFLOXACIN [Concomitant]
     Dosage: 400 MG, QD
     Route: 042
     Dates: start: 20021011, end: 20030102
  13. NAFCILLIN [Concomitant]
     Dosage: 2 G EVERY 6 HOURS
     Route: 042
     Dates: start: 20021011, end: 20030102
  14. ALLOPURINOL [Concomitant]
     Dosage: 600 MG, UNK
     Route: 048
     Dates: start: 20021120, end: 20021120
  15. TRASYLOL [Suspect]
     Indication: AORTIC VALVE REPLACEMENT
     Dosage: 1 ML, ONCE, TEST DOSE
     Route: 042
     Dates: start: 20021120, end: 20021120
  16. TRASYLOL [Suspect]
     Dosage: 99 ML ONCE LOADING DOSE
     Route: 042
     Dates: start: 20021120, end: 20021120
  17. EPOETIN ALFA [Concomitant]
     Dosage: 4000 U MONDAY, WEDNESDAY, AND FRIDAY
     Route: 058
     Dates: start: 20021030, end: 20030103
  18. PROTAMINE SULFATE [Concomitant]
     Dosage: 300 MG, UNK
     Route: 042
     Dates: start: 20021120, end: 20021120
  19. CEFUROXIME [Concomitant]
     Dosage: 1.5 G, ONCE
     Route: 042
     Dates: start: 20021120, end: 20021120
  20. RED BLOOD CELLS [Concomitant]
     Dosage: 4 U, ONCE
     Route: 042
     Dates: start: 20021120
  21. HEPARIN [Concomitant]
     Dosage: 5000 U, BID
     Route: 058
     Dates: start: 20021011, end: 20021017
  22. VANCOMYCIN [Concomitant]
     Dosage: 1 G EVERY 48 HOURS
     Route: 042
     Dates: start: 20021011, end: 20021020
  23. EPINEPHRINE [Concomitant]
     Dosage: UNK
     Route: 042
     Dates: start: 20021120
  24. FRESH FROZEN PLASMA [Concomitant]
     Dosage: 2 U, ONCE
     Route: 042
     Dates: start: 20021120
  25. CONTRAST MEDIA [Concomitant]
     Indication: CATHETERISATION CARDIAC
     Dosage: UNK
     Dates: start: 20021118
  26. HEPARIN [Concomitant]
     Dosage: 28 ML, UNK
     Route: 042
     Dates: start: 20021120
  27. VANCOMYCIN [Concomitant]
     Dosage: 750 MG EVERY 48 HOURS
     Route: 042
     Dates: start: 20021020, end: 20021219
  28. VANCOMYCIN [Concomitant]
     Dosage: 1 G, UNK
     Route: 042
     Dates: start: 20021120
  29. VERSED [Concomitant]
     Dosage: 2 MG INTERMITTENT DOSING
     Dates: start: 20021011, end: 20021026
  30. LORTAB [Concomitant]
     Dosage: 7.5MG 2 TAB TWICE DAILY AS NEEDED, LONG TERM USE
     Route: 048
  31. VASOTEC [Concomitant]
     Dosage: UNK
     Route: 048
     Dates: start: 20020101
  32. DIATRIZOATE SODIUM W/MEGLUMINE DIATRIZOATE [Concomitant]
     Dosage: 2 ML, ONCE
     Route: 042
     Dates: start: 20021012, end: 20021012
  33. TOBRAMYCIN [Concomitant]
     Dosage: 350 MG EVERY 48 HOURS
     Route: 042
     Dates: start: 20021018, end: 20021022
  34. ATIVAN [Concomitant]
     Dosage: 1 MG INTERMITTENT TIMING
     Route: 042
     Dates: start: 20021116, end: 20021117

REACTIONS (11)
  - DEATH [None]
  - UNEVALUABLE EVENT [None]
  - ANHEDONIA [None]
  - ANXIETY [None]
  - FEAR [None]
  - RENAL FAILURE [None]
  - HEMIPARESIS [None]
  - PAIN [None]
  - DEPRESSION [None]
  - CEREBROVASCULAR ACCIDENT [None]
  - INJURY [None]
